FAERS Safety Report 14241653 (Version 1)
Quarter: 2017Q4

REPORT INFORMATION
  Report Type: Spontaneous
  Country: CN (occurrence: CN)
  Receive Date: 20171201
  Receipt Date: 20171201
  Transmission Date: 20180321
  Serious: Yes (Hospitalization)
  Sender: FDA-Public Use
  Company Number: CN-CIPLA LTD.-2017CN21257

PATIENT

DRUGS (7)
  1. GEMCITABINE [Suspect]
     Active Substance: GEMCITABINE\GEMCITABINE HYDROCHLORIDE
     Indication: PANCREATIC CARCINOMA
     Dosage: UNK, WEEKLY
     Route: 065
     Dates: start: 20141107, end: 20141208
  2. FLUOROURACIL. [Suspect]
     Active Substance: FLUOROURACIL
     Indication: PANCREATIC CARCINOMA
     Dosage: UNK
     Route: 065
  3. LEUCOVORIN. [Suspect]
     Active Substance: LEUCOVORIN
     Indication: PANCREATIC CARCINOMA
     Dosage: UNK
     Route: 065
  4. TS-1 [Suspect]
     Active Substance: GIMERACIL\OTERACIL\TEGAFUR
     Indication: PANCREATIC CARCINOMA
     Dosage: UNK
     Route: 065
  5. GEMCITABINE [Suspect]
     Active Substance: GEMCITABINE\GEMCITABINE HYDROCHLORIDE
     Dosage: UNK, 4 CYCLES
     Route: 065
  6. OXALIPLATIN. [Suspect]
     Active Substance: OXALIPLATIN
     Indication: PANCREATIC CARCINOMA
     Dosage: UNK, 4 CYCLES
     Route: 065
  7. NAB-PACLITAXEL [Suspect]
     Active Substance: PACLITAXEL
     Indication: PANCREATIC CARCINOMA
     Dosage: UNK, 4 CYCLES
     Route: 065
     Dates: start: 20150627

REACTIONS (3)
  - Gastrointestinal toxicity [Unknown]
  - Metastases to lung [Unknown]
  - Disease progression [Unknown]
